FAERS Safety Report 8450328-3 (Version None)
Quarter: 2012Q2

REPORT INFORMATION
  Report Type: 
  Country: None (occurrence: None)
  Receive Date: 20120620
  Receipt Date: 20120613
  Transmission Date: 20120825
  Serious: Yes (Hospitalization)
  Sender: FDA-Public Use
  Company Number: PHHY2012BE050130

PATIENT
  Age: 26 Year
  Sex: Female

DRUGS (1)
  1. CLOZAPINE [Suspect]
     Dosage: 5 TABLETS OF 100 MG
     Route: 048
     Dates: start: 20120610

REACTIONS (3)
  - CONFUSIONAL STATE [None]
  - AGITATION [None]
  - POISONING [None]
